FAERS Safety Report 9580222 (Version 1)
Quarter: 2013Q4

REPORT INFORMATION
  Report Type: Spontaneous
  Country: US (occurrence: None)
  Receive Date: 20131001
  Receipt Date: 20131001
  Transmission Date: 20140711
  Serious: Yes (Other)
  Sender: FDA-Public Use
  Company Number: None

PATIENT
  Age: 75 Year
  Sex: Male
  Weight: 97.7 kg

DRUGS (1)
  1. REFRESH LIQUIGEL [Suspect]
     Indication: DRY EYE

REACTIONS (2)
  - Product contamination microbial [None]
  - Device malfunction [None]
